FAERS Safety Report 9922716 (Version 1)
Quarter: 2014Q1

REPORT INFORMATION
  Report Type: Spontaneous
  Country: US (occurrence: US)
  Receive Date: 20140225
  Receipt Date: 20140225
  Transmission Date: 20141002
  Serious: Yes (Other)
  Sender: FDA-Public Use
  Company Number: PHHY2014US019864

PATIENT
  Age: 9 Year
  Sex: Female

DRUGS (1)
  1. CO-TRIMOXAZOLE [Suspect]
     Indication: URINARY TRACT INFECTION

REACTIONS (17)
  - Drug reaction with eosinophilia and systemic symptoms [Recovering/Resolving]
  - Pyrexia [Recovering/Resolving]
  - Rash [Recovering/Resolving]
  - Hepatitis [Recovering/Resolving]
  - Hepatomegaly [Recovering/Resolving]
  - Ascites [Recovering/Resolving]
  - Hyponatraemia [Recovering/Resolving]
  - Pulmonary oedema [Recovering/Resolving]
  - Lymphadenopathy [Recovering/Resolving]
  - Haemolytic anaemia [Recovering/Resolving]
  - Lymphocytosis [Recovering/Resolving]
  - Eosinophilia [Recovering/Resolving]
  - Rash morbilliform [Recovering/Resolving]
  - Dermatitis exfoliative [Recovering/Resolving]
  - Papule [Recovering/Resolving]
  - Hypoalbuminaemia [Recovering/Resolving]
  - Tubulointerstitial nephritis [Recovering/Resolving]
